FAERS Safety Report 5035083-1 (Version None)
Quarter: 2006Q2

REPORT INFORMATION
  Report Type: 
  Country: None (occurrence: None)
  Receive Date: 20060627
  Receipt Date: 20060606
  Transmission Date: 20061013
  Serious: Yes (Hospitalization)
  Sender: FDA-Public Use
  Company Number: JP-SP-2006-01406

PATIENT
  Age: 65 Year
  Sex: Male

DRUGS (3)
  1. IMMUCYST [Suspect]
     Indication: BLADDER CANCER
     Route: 043
     Dates: start: 20060523
  2. IMMUCYST [Suspect]
     Route: 043
     Dates: start: 20060523
  3. CHOREI-TO [Concomitant]
     Dates: start: 20030304, end: 20060605

REACTIONS (3)
  - CONTRACTED BLADDER [None]
  - DYSURIA [None]
  - POLLAKIURIA [None]
